FAERS Safety Report 5865261-0 (Version None)
Quarter: 2008Q3

REPORT INFORMATION
  Report Type: 
  Country: None (occurrence: None)
  Receive Date: 20080829
  Receipt Date: 20080729
  Transmission Date: 20090109
  Serious: No
  Sender: FDA-Public Use
  Company Number: US-ABBOTT-08P-163-0466692-00

PATIENT
  Sex: Male
  Weight: 81.72 kg

DRUGS (2)
  1. SIMCOR [Suspect]
     Indication: BLOOD CHOLESTEROL INCREASED
     Dosage: 500/20MG (TOTAL DAILY DOSE) 500/20MG, AT BED TIME
     Route: 048
     Dates: start: 20080501
  2. ACETYLSALICYLIC ACID SRT [Concomitant]
     Indication: PROPHYLAXIS
     Route: 048

REACTIONS (2)
  - ERYTHEMA [None]
  - FEELING HOT [None]
